FAERS Safety Report 4784078-1 (Version None)
Quarter: 2005Q3

REPORT INFORMATION
  Report Type: 
  Country: None (occurrence: None)
  Receive Date: 20050930
  Receipt Date: 20050602
  Transmission Date: 20060218
  Serious: Yes (Other)
  Sender: FDA-Public Use
  Company Number: US-GLAXOSMITHKLINE-A0560859A

PATIENT
  Age: 58 Year
  Sex: Female
  Weight: 51.4 kg

DRUGS (5)
  1. FLOVENT [Suspect]
     Indication: DRUG USE FOR UNKNOWN INDICATION
     Dosage: 2PUFF PER DAY
     Route: 055
     Dates: start: 20050527
  2. BUDESONIDE [Concomitant]
  3. ALUPENT [Concomitant]
  4. CLARITIN [Concomitant]
  5. ALENDRONATE [Concomitant]

REACTIONS (2)
  - CHEST DISCOMFORT [None]
  - PNEUMONITIS [None]
